FAERS Safety Report 7255247-6 (Version None)
Quarter: 2011Q1

REPORT INFORMATION
  Report Type: 
  Country: None (occurrence: None)
  Receive Date: 20110129
  Receipt Date: 20100219
  Transmission Date: 20110831
  Serious: No
  Sender: FDA-Public Use
  Company Number: US-ABBOTT-10P-163-0628473-00

PATIENT
  Sex: Male
  Weight: 99.88 kg

DRUGS (7)
  1. CHOLESTEROL MEDICATION [Concomitant]
     Indication: BLOOD CHOLESTEROL ABNORMAL
  2. GARLIC PILLS [Concomitant]
     Indication: PRODUCT USED FOR UNKNOWN INDICATION
  3. HUMIRA [Suspect]
     Indication: PSORIASIS
     Route: 058
     Dates: start: 20091201
  4. ASA [Concomitant]
     Indication: PRODUCT USED FOR UNKNOWN INDICATION
  5. UNKNOWN BLOOD PRESSURE PILL [Concomitant]
     Indication: HYPERTENSION
  6. CYCLOSPORINE [Concomitant]
     Indication: PRODUCT USED FOR UNKNOWN INDICATION
     Dosage: WEANING
  7. FISH OIL [Concomitant]
     Indication: PRODUCT USED FOR UNKNOWN INDICATION

REACTIONS (1)
  - INJECTION SITE HAEMATOMA [None]
